FAERS Safety Report 6402251-3 (Version None)
Quarter: 2009Q4

REPORT INFORMATION
  Report Type: 
  Country: None (occurrence: None)
  Receive Date: 20091015
  Receipt Date: 20090930
  Transmission Date: 20100525
  Serious: Yes (Other)
  Sender: FDA-Public Use
  Company Number: PHHY2009JP42644

PATIENT
  Age: 72 Year
  Sex: Male

DRUGS (4)
  1. DIOVAN [Suspect]
     Indication: HYPERTENSION
     Dosage: 160 MG, QD
     Route: 048
     Dates: start: 20090612, end: 20090930
  2. PLETAL [Suspect]
     Dosage: UNK
     Route: 048
     Dates: start: 20090619, end: 20090930
  3. ADALAT CC [Concomitant]
     Dosage: 40 MG
     Route: 048
     Dates: start: 20090612
  4. BASEN [Concomitant]
     Dosage: UNK
     Route: 048
     Dates: start: 20090718, end: 20090930

REACTIONS (5)
  - ANAEMIA [None]
  - ASCITES [None]
  - OEDEMA PERIPHERAL [None]
  - WEIGHT INCREASED [None]
  - WHITE BLOOD CELL COUNT DECREASED [None]
